FAERS Safety Report 6251011-5 (Version None)
Quarter: 2009Q2

REPORT INFORMATION
  Report Type: 
  Country: None (occurrence: None)
  Receive Date: 20090626
  Receipt Date: 20090612
  Transmission Date: 20091009
  Serious: Yes (Hospitalization)
  Sender: FDA-Public Use
  Company Number: 2009-198678-NL

PATIENT
  Age: 76 Year
  Sex: Female

DRUGS (3)
  1. MIRTAZAPINE [Suspect]
     Indication: DEPRESSION
     Dosage: 30 MG
  2. TELMISARTAN [Concomitant]
  3. HYDROCHLOROTHIAZIDE [Concomitant]

REACTIONS (4)
  - CONFUSIONAL STATE [None]
  - DYSPHASIA [None]
  - HYPONATRAEMIA [None]
  - SOMNOLENCE [None]
